FAERS Safety Report 9007340 (Version 1)
Quarter: 2013Q1

REPORT INFORMATION
  Report Type: Spontaneous
  Country: US (occurrence: US)
  Receive Date: 20130110
  Receipt Date: 20130110
  Transmission Date: 20140127
  Serious: Yes (Other)
  Sender: FDA-Public Use
  Company Number: CHPA2012US026122

PATIENT
  Age: 66 Year
  Sex: Female

DRUGS (2)
  1. EXCEDRIN MIGRAINE [Suspect]
     Indication: BACK PAIN
     Dosage: 2 DF, UNK
     Route: 048
  2. EXCEDRIN MIGRAINE [Suspect]
     Dosage: UNK, UNK
     Route: 048

REACTIONS (3)
  - Fall [Unknown]
  - Off label use [Unknown]
  - Overdose [Unknown]
